FAERS Safety Report 4291810-2 (Version None)
Quarter: 2004Q1

REPORT INFORMATION
  Report Type: 
  Country: None (occurrence: None)
  Receive Date: 20040211
  Receipt Date: 20030521
  Transmission Date: 20041129
  Serious: No
  Sender: FDA-Public Use
  Company Number: US-GLAXOSMITHKLINE-A0409199A

PATIENT
  Age: 48 Year
  Sex: Female

DRUGS (5)
  1. IMITREX [Suspect]
     Indication: MIGRAINE
     Dosage: 50MG PER DAY
     Route: 048
     Dates: start: 20020101
  2. IBUPROFEN [Concomitant]
     Route: 065
  3. EXCEDRIN [Concomitant]
     Route: 065
  4. TYLENOL (CAPLET) [Concomitant]
     Route: 065
  5. PREDNISONE [Concomitant]
     Route: 065
     Dates: start: 19850101

REACTIONS (1)
  - ALOPECIA [None]
